FAERS Safety Report 14148752 (Version 1)
Quarter: 2017Q4

REPORT INFORMATION
  Report Type: Spontaneous
  Country: BG (occurrence: BG)
  Receive Date: 20171101
  Receipt Date: 20171101
  Transmission Date: 20180321
  Serious: Yes (Other)
  Sender: FDA-Public Use
  Company Number: BG-ASTELLAS-2017US043535

PATIENT
  Age: 62 Year
  Sex: Male

DRUGS (3)
  1. DENOSUMAB [Concomitant]
     Active Substance: DENOSUMAB
     Indication: PROSTATE CANCER
     Dosage: UNK UNK, UNKNOWN FREQ.
     Route: 065
     Dates: start: 201610
  2. ENZALUTAMIDE [Suspect]
     Active Substance: ENZALUTAMIDE
     Indication: PROSTATE CANCER
     Dosage: UNK UNK, UNKNOWN FREQ.
     Route: 065
     Dates: start: 201601
  3. ZOLEDRONIC ACID. [Concomitant]
     Active Substance: ZOLEDRONIC ACID
     Indication: PROSTATE CANCER
     Dosage: UNK UNK, UNKNOWN FREQ.
     Route: 065
     Dates: start: 201601

REACTIONS (7)
  - Bone pain [Unknown]
  - Prostatic specific antigen increased [Unknown]
  - Lymphadenopathy [Unknown]
  - Diabetic neuropathy [Unknown]
  - Haemoglobin decreased [Unknown]
  - Fatigue [Unknown]
  - Metastases to bone [Unknown]

NARRATIVE: CASE EVENT DATE: 201601
